FAERS Safety Report 4426545-6 (Version None)
Quarter: 2004Q3

REPORT INFORMATION
  Report Type: 
  Country: None (occurrence: None)
  Receive Date: 20040816
  Receipt Date: 20040809
  Transmission Date: 20050211
  Serious: Yes (Death)
  Sender: FDA-Public Use
  Company Number: US-JNJFOC-20040300817

PATIENT
  Sex: Female
  Weight: 113.4 kg

DRUGS (4)
  1. DURAGESIC [Suspect]
     Indication: PAIN
     Route: 062
     Dates: start: 20040106, end: 20040110
  2. VALIUM [Concomitant]
  3. ANTIDEPRESSANT [Concomitant]
  4. ANTI-SEIZURE MEDICATION [Concomitant]

REACTIONS (2)
  - ACCIDENT [None]
  - OVERDOSE [None]
